FAERS Safety Report 7226559-7 (Version None)
Quarter: 2011Q1

REPORT INFORMATION
  Report Type: 
  Country: None (occurrence: None)
  Receive Date: 20110114
  Receipt Date: 20110106
  Transmission Date: 20110831
  Serious: Yes (Other)
  Sender: FDA-Public Use
  Company Number: IE-JNJFOC-20101107035

PATIENT
  Sex: Female

DRUGS (10)
  1. REMICADE [Suspect]
     Route: 042
  2. NOVORAPID [Concomitant]
  3. REMICADE [Suspect]
     Route: 042
  4. LANTUS [Concomitant]
  5. ELEMENTAL 028 [Concomitant]
  6. PRILOSEC [Concomitant]
  7. REMICADE [Suspect]
     Indication: CROHN'S DISEASE
     Route: 042
  8. CALCICHEW D3 [Concomitant]
  9. REMICADE [Suspect]
     Route: 042
  10. PREDNISONE [Concomitant]

REACTIONS (1)
  - ALOPECIA [None]
